FAERS Safety Report 9404308 (Version 1)
Quarter: 2013Q3

REPORT INFORMATION
  Report Type: Spontaneous
  Country: US (occurrence: None)
  Receive Date: 20130716
  Receipt Date: 20130716
  Transmission Date: 20140515
  Serious: Yes (Other)
  Sender: FDA-Public Use
  Company Number: None

PATIENT
  Sex: Male

DRUGS (1)
  1. SOLODYN [Suspect]
     Indication: ACNE
     Dosage: SOLODYN 80 MG DAILY PO
     Route: 048
     Dates: start: 20130621, end: 20130710

REACTIONS (1)
  - Urticaria [None]
